FAERS Safety Report 10285352 (Version 2)
Quarter: 2014Q4

REPORT INFORMATION
  Report Type: Spontaneous
  Country: US (occurrence: US)
  Receive Date: 20140708
  Receipt Date: 20141106
  Transmission Date: 20150528
  Serious: No
  Sender: FDA-Public Use
  Company Number: US-009507513-1406USA013265

PATIENT
  Age: 20 Year
  Sex: Female
  Weight: 47.62 kg

DRUGS (1)
  1. NEXPLANON [Suspect]
     Active Substance: ETONOGESTREL
     Indication: CONTRACEPTION
     Dosage: 1 ROD FOR 3 YEARS
     Route: 059
     Dates: start: 20130627

REACTIONS (4)
  - Menorrhagia [Unknown]
  - Metrorrhagia [Recovered/Resolved]
  - Metrorrhagia [Unknown]
  - Menstrual disorder [Unknown]

NARRATIVE: CASE EVENT DATE: 201406
